FAERS Safety Report 17183206 (Version 1)
Quarter: 2019Q4

REPORT INFORMATION
  Report Type: Spontaneous
  Country: US (occurrence: US)
  Receive Date: 20191127
  Receipt Date: 20191127
  Transmission Date: 20200122
  Serious: No
  Sender: FDA-Public Use
  Company Number: None

PATIENT
  Age: 59 Year
  Sex: Female

DRUGS (1)
  1. REBIF [Suspect]
     Active Substance: INTERFERON BETA-1A
     Indication: MULTIPLE SCLEROSIS
     Route: 058
     Dates: start: 20170730

REACTIONS (4)
  - Injection site swelling [None]
  - Injection site erythema [None]
  - Injection site reaction [None]
  - Injection site pruritus [None]

NARRATIVE: CASE EVENT DATE: 20191127
